FAERS Safety Report 9090598 (Version 1)
Quarter: 2013Q1

REPORT INFORMATION
  Report Type: Report from Study
  Country: JP (occurrence: JP)
  Receive Date: 20130219
  Receipt Date: 20130219
  Transmission Date: 20140127
  Serious: Yes (Other)
  Sender: FDA-Public Use
  Company Number: JP-009507513-1302JPN007415

PATIENT
  Age: 66 Year
  Sex: Male
  Weight: 77 kg

DRUGS (8)
  1. REBETOL [Suspect]
     Indication: CHRONIC HEPATITIS C
     Dosage: 400 MG, BID
     Route: 048
     Dates: start: 20100929, end: 20110830
  2. FERON [Suspect]
     Indication: CHRONIC HEPATITIS C
     Dosage: 6 MILLION IU, QD
     Route: 042
     Dates: start: 20100929, end: 20100929
  3. FERON [Suspect]
     Dosage: 3 MILLION IU, QD
     Route: 042
     Dates: start: 20100930, end: 20101012
  4. FERON [Suspect]
     Dosage: 6 MILLION IU, QD
     Route: 042
     Dates: start: 20101013, end: 20101026
  5. FERON [Suspect]
     Dosage: 6 MILLION IU, THREE TIMES A WEEK
     Route: 042
     Dates: start: 20101027, end: 20110829
  6. ONEALFA [Concomitant]
     Indication: OSTEOPOROSIS
     Dosage: 1 MICROGRAM, DAILY
     Route: 048
     Dates: start: 20100929
  7. LIVALO [Concomitant]
     Indication: HYPERLIPIDAEMIA
     Dosage: 2 MG, DAILY, DIVIDED DOSE FREQUENCY UNKNOWN
     Route: 048
     Dates: start: 20100929
  8. LIVACT [Concomitant]
     Indication: HYPOALBUMINAEMIA
     Dosage: 8.3 G, DAILY, DIVIDED DOSE FREQUENCY UNKNOWN
     Route: 048
     Dates: start: 20110322

REACTIONS (3)
  - Neutrophil count decreased [Recovered/Resolved]
  - Pyrexia [Recovering/Resolving]
  - Headache [Recovered/Resolved]
